FAERS Safety Report 5111732-4 (Version None)
Quarter: 2006Q3

REPORT INFORMATION
  Report Type: 
  Country: None (occurrence: None)
  Receive Date: 20060922
  Receipt Date: 20060208
  Transmission Date: 20061208
  Serious: No
  Sender: FDA-Public Use
  Company Number: US-GLAXOSMITHKLINE-A0592762A

PATIENT

DRUGS (1)
  1. ABREVA [Suspect]

REACTIONS (3)
  - DRUG ADMINISTRATION ERROR [None]
  - EYE SWELLING [None]
  - OCULAR HYPERAEMIA [None]
